FAERS Safety Report 10582639 (Version 3)
Quarter: 2015Q3

REPORT INFORMATION
  Report Type: Spontaneous
  Country: FR (occurrence: FR)
  Receive Date: 20141113
  Receipt Date: 20150813
  Transmission Date: 20151125
  Serious: Yes (Hospitalization)
  Sender: FDA-Public Use
  Company Number: FR-GILEAD-2014-0122390

PATIENT
  Age: 72 Year
  Sex: Male

DRUGS (11)
  1. ESOMEPRAZOLE [Concomitant]
     Active Substance: ESOMEPRAZOLE
     Dosage: 20 MG, QD
     Route: 048
     Dates: start: 20140611
  2. PREVISCAN [Concomitant]
     Active Substance: FLUINDIONE
     Dosage: UNK
     Route: 048
     Dates: start: 20140611
  3. PREVISCAN                          /00789001/ [Concomitant]
     Active Substance: FLUINDIONE
     Dosage: UNK
     Route: 048
     Dates: start: 20140611
  4. SPASFON                            /00934601/ [Concomitant]
     Active Substance: PHLOROGLUCINOL
     Dosage: 80 MG, TID
     Route: 048
     Dates: start: 20140611
  5. TADENAN [Concomitant]
     Active Substance: PYGEUM
  6. TRACLEER [Concomitant]
     Active Substance: BOSENTAN
     Dosage: UNK
     Dates: start: 20140823, end: 201409
  7. LASILIX                            /00032601/ [Concomitant]
     Active Substance: FUROSEMIDE
  8. BETNEVAL [Concomitant]
     Active Substance: BETAMETHASONE VALERATE
  9. PIASCLEDINE                        /01305801/ [Concomitant]
  10. AMBRISENTAN [Suspect]
     Active Substance: AMBRISENTAN
     Indication: PRODUCT USED FOR UNKNOWN INDICATION
     Dosage: UNK
     Route: 048
     Dates: start: 20140922, end: 20140929
  11. KARDEGIC [Concomitant]
     Active Substance: ASPIRIN LYSINE

REACTIONS (2)
  - Rash erythematous [Recovering/Resolving]
  - Rash pustular [Recovering/Resolving]

NARRATIVE: CASE EVENT DATE: 20140928
